FAERS Safety Report 9089510 (Version 1)
Quarter: 2013Q1

REPORT INFORMATION
  Report Type: Spontaneous
  Country: US (occurrence: US)
  Receive Date: 20130201
  Receipt Date: 20130201
  Transmission Date: 20140127
  Serious: No
  Sender: FDA-Public Use
  Company Number: US-GALDERMA-US-GDP-12414680

PATIENT
  Sex: Female
  Weight: 68 kg

DRUGS (3)
  1. EPIDUO [Suspect]
     Indication: SEBORRHOEA
     Route: 061
     Dates: start: 201205
  2. CETAPHIL DERMACONTROL SPF 30 [Suspect]
     Indication: SEBORRHOEA
     Dosage: UNKNOWN
     Route: 061
     Dates: start: 201206, end: 20120714
  3. CETAPHIL [Suspect]
     Indication: SEBORRHOEA
     Dosage: UNKNOWN
     Route: 061
     Dates: start: 201205

REACTIONS (3)
  - Seborrhoea [Recovered/Resolved]
  - Condition aggravated [Recovered/Resolved]
  - Acne [Recovered/Resolved]
